FAERS Safety Report 4901114-X (Version None)
Quarter: 2006Q1

REPORT INFORMATION
  Report Type: 
  Country: None (occurrence: None)
  Receive Date: 20060113
  Receipt Date: 20051012
  Transmission Date: 20060701
  Serious: No
  Sender: FDA-Public Use
  Company Number: 2005SP000318

PATIENT
  Age: 70 Year
  Sex: Female
  Weight: 65.7716 kg

DRUGS (4)
  1. LUNESTA [Suspect]
     Indication: INSOMNIA
     Dosage: 1 MG;HS;ORAL   2 MG;HS;ORAL   2 MG;HS;ORAL
     Route: 048
     Dates: start: 20050420, end: 20050420
  2. LUNESTA [Suspect]
     Indication: INSOMNIA
     Dosage: 1 MG;HS;ORAL   2 MG;HS;ORAL   2 MG;HS;ORAL
     Route: 048
     Dates: start: 20050421, end: 20050422
  3. LUNESTA [Suspect]
     Indication: INSOMNIA
     Dosage: 1 MG;HS;ORAL   2 MG;HS;ORAL   2 MG;HS;ORAL
     Route: 048
     Dates: start: 20050928, end: 20050930
  4. AMBIEN [Concomitant]

REACTIONS (5)
  - ABNORMAL DREAMS [None]
  - DRUG INEFFECTIVE [None]
  - DYSGEUSIA [None]
  - HEADACHE [None]
  - INSOMNIA [None]
